FAERS Safety Report 16921527 (Version 2)
Quarter: 2019Q4

REPORT INFORMATION
  Report Type: Spontaneous
  Country: BR (occurrence: BR)
  Receive Date: 20191015
  Receipt Date: 20191031
  Transmission Date: 20200122
  Serious: Yes (Hospitalization, Other)
  Sender: FDA-Public Use
  Company Number: BR-BIOMARINAP-BR-2019-126248

PATIENT

DRUGS (4)
  1. FUROSEMIDE. [Concomitant]
     Active Substance: FUROSEMIDE
     Indication: PRODUCT USED FOR UNKNOWN INDICATION
     Dosage: UNK
     Dates: start: 2007
  2. CARVEDILOL. [Concomitant]
     Active Substance: CARVEDILOL
     Indication: CARDIOVASCULAR DISORDER
     Dosage: 6.5 MILLILITER, QD
     Dates: start: 2007
  3. NAGLAZYME [Suspect]
     Active Substance: GALSULFASE
     Indication: MUCOPOLYSACCHARIDOSIS VI
     Dosage: UNK, QW
     Route: 042
  4. MAREVAN [Concomitant]
     Active Substance: WARFARIN SODIUM
     Indication: ANTICOAGULANT THERAPY
     Dosage: 5 MILLIGRAM, QD
     Dates: start: 2007

REACTIONS (5)
  - Pyrexia [Recovered/Resolved]
  - Product dose omission [Unknown]
  - Oxygen saturation decreased [Recovered/Resolved]
  - Dyspnoea [Recovered/Resolved]
  - Productive cough [Recovered/Resolved]

NARRATIVE: CASE EVENT DATE: 20190926
